FAERS Safety Report 4485662-5 (Version None)
Quarter: 2004Q4

REPORT INFORMATION
  Report Type: 
  Country: None (occurrence: None)
  Receive Date: 20041026
  Receipt Date: 20041020
  Transmission Date: 20050328
  Serious: Yes (Hospitalization)
  Sender: FDA-Public Use
  Company Number: US-MERCK-0410USA03164

PATIENT
  Age: 71 Year
  Sex: Female

DRUGS (4)
  1. VIOXX [Suspect]
     Indication: LOCALISED OSTEOARTHRITIS
     Route: 048
     Dates: start: 20000101, end: 20020101
  2. SEREVENT [Concomitant]
     Route: 065
  3. PROVENTIL [Concomitant]
     Route: 065
  4. ATROVENT [Concomitant]
     Route: 065

REACTIONS (1)
  - HEART RATE IRREGULAR [None]
